FAERS Safety Report 13037292 (Version 2)
Quarter: 2017Q1

REPORT INFORMATION
  Report Type: Spontaneous
  Country: US (occurrence: US)
  Receive Date: 20161216
  Receipt Date: 20170110
  Transmission Date: 20170509
  Serious: No
  Sender: FDA-Public Use
  Company Number: US-GLAXOSMITHKLINE-US2016186769

PATIENT
  Sex: Female

DRUGS (1)
  1. ANORO ELLIPTA [Suspect]
     Active Substance: UMECLIDINIUM BROMIDE\VILANTEROL TRIFENATATE
     Indication: PRODUCT USED FOR UNKNOWN INDICATION
     Dosage: UNK, U
     Route: 055

REACTIONS (4)
  - Product label confusion [Unknown]
  - Circumstance or information capable of leading to medication error [Unknown]
  - Drug dose omission [Unknown]
  - Drug dispensing error [Unknown]
